FAERS Safety Report 5086949-8 (Version None)
Quarter: 2006Q3

REPORT INFORMATION
  Report Type: 
  Country: None (occurrence: None)
  Receive Date: 20060821
  Receipt Date: 20060814
  Transmission Date: 20061208
  Serious: Yes (Other)
  Sender: FDA-Public Use
  Company Number: 2006-08-0710

PATIENT
  Age: 60 Year
  Sex: Male

DRUGS (3)
  1. TEMOZOLOMIDE CAPSULES [Suspect]
     Indication: GLIOMA
     Dosage: ORAL
     Route: 048
     Dates: start: 20060307, end: 20060509
  2. OMEPRAZOLE [Suspect]
     Indication: PROPHYLAXIS
     Dosage: 20 MG ORAL
     Route: 048
     Dates: start: 20060209, end: 20060612
  3. DEXAMETHASONE [Concomitant]

REACTIONS (1)
  - DERMATITIS EXFOLIATIVE [None]
